FAERS Safety Report 7938398-X (Version None)
Quarter: 2011Q4

REPORT INFORMATION
  Report Type: 
  Country: None (occurrence: None)
  Receive Date: 20111123
  Receipt Date: 20111116
  Transmission Date: 20120403
  Serious: No
  Sender: FDA-Public Use
  Company Number: US-PFIZER INC-2011273080

PATIENT
  Sex: Male
  Weight: 81.633 kg

DRUGS (4)
  1. DIOVAN [Concomitant]
     Indication: BLOOD PRESSURE ABNORMAL
     Dosage: 320MG/25MG DAILY
  2. MULTI-VITAMINS [Concomitant]
     Dosage: UNK
  3. VIAGRA [Suspect]
     Dosage: 100 MG, 1X/DAY
     Route: 048
     Dates: start: 20110101, end: 20110101
  4. VIAGRA [Suspect]
     Indication: ERECTILE DYSFUNCTION
     Dosage: 50 MG, 1X/DAY
     Route: 048
     Dates: start: 20110101, end: 20110901

REACTIONS (1)
  - DRUG INEFFECTIVE [None]
